FAERS Safety Report 10013624 (Version 1)
Quarter: 2014Q1

REPORT INFORMATION
  Report Type: Spontaneous
  Country: US (occurrence: US)
  Receive Date: 20140315
  Receipt Date: 20140315
  Transmission Date: 20141002
  Serious: No
  Sender: FDA-Public Use
  Company Number: US-B.I. PHARMACEUTICALS,INC./RIDGEFIELD-2014-BI-10454BP

PATIENT
  Age: 79 Year
  Sex: Male
  Weight: 69 kg

DRUGS (2)
  1. SPIRIVA [Suspect]
     Indication: EMPHYSEMA
     Dosage: 18 MG
     Route: 055
     Dates: start: 20140306
  2. DULERA [Concomitant]
     Indication: EMPHYSEMA
     Dosage: FORMULATION: INHALATION SPRAY STRENGTH: 200 MCG/5 MCG; DAILY DOSE: 800 MCG/20 MCG
     Route: 055

REACTIONS (3)
  - Fatigue [Not Recovered/Not Resolved]
  - Rhinorrhoea [Not Recovered/Not Resolved]
  - Cough [Not Recovered/Not Resolved]
